FAERS Safety Report 7577016-X (Version None)
Quarter: 2011Q2

REPORT INFORMATION
  Report Type: 
  Country: None (occurrence: None)
  Receive Date: 20110628
  Receipt Date: 20110623
  Transmission Date: 20111010
  Serious: No
  Sender: FDA-Public Use
  Company Number: US-PFIZER INC-2011109699

PATIENT
  Sex: Male
  Weight: 72.562 kg

DRUGS (2)
  1. ALAVERT [Suspect]
  2. ALAVERT [Suspect]
     Indication: RHINORRHOEA
     Dosage: 10 MG DAILY
     Route: 048
     Dates: start: 20110501

REACTIONS (1)
  - DRUG INEFFECTIVE [None]
